FAERS Safety Report 8851083 (Version 1)
Quarter: 2012Q4

REPORT INFORMATION
  Report Type: 
  Country: GB (occurrence: GB)
  Receive Date: 20121019
  Receipt Date: 20121019
  Transmission Date: 20130627
  Serious: Yes (Hospitalization)
  Sender: FDA-Public Use
  Company Number: GB-SANOFI-AVENTIS-2012SA075467

PATIENT
  Age: 81 Year
  Sex: Female
  Weight: 65.5 kg

DRUGS (9)
  1. GLIMEPIRIDE [Suspect]
     Indication: TYPE 2 DIABETES MELLITUS
     Dosage: dose- 1, daily dose-2, units - unspecified
     Route: 065
     Dates: end: 20120813
  2. AMLODIPINE [Concomitant]
  3. ASPIRIN [Concomitant]
  4. ATENOLOL [Concomitant]
  5. SALBUTAMOL [Concomitant]
  6. SIMVASTATIN [Concomitant]
  7. PARACETAMOL [Concomitant]
  8. PERINDOPRIL [Concomitant]
  9. IBUPROFEN [Concomitant]

REACTIONS (4)
  - Tubulointerstitial nephritis [Unknown]
  - Hypoglycaemia [Recovered/Resolved]
  - Somnolence [Recovered/Resolved]
  - Unresponsive to stimuli [Recovered/Resolved]
